FAERS Safety Report 8213749-X (Version None)
Quarter: 2012Q1

REPORT INFORMATION
  Report Type: 
  Country: None (occurrence: None)
  Receive Date: 20120316
  Receipt Date: 20120307
  Transmission Date: 20120608
  Serious: Yes (Hospitalization, Other)
  Sender: FDA-Public Use
  Company Number: US-ASTRAZENECA-2011SE07340

PATIENT
  Age: 57 Year
  Sex: Female

DRUGS (26)
  1. SEROQUEL [Suspect]
     Indication: DEPRESSION
     Route: 048
     Dates: start: 20080101, end: 20110105
  2. SEROQUEL [Suspect]
     Indication: ANXIETY
     Route: 048
     Dates: start: 20080101, end: 20110105
  3. SEROQUEL [Suspect]
     Route: 048
  4. SEROQUEL [Suspect]
     Route: 048
  5. AMBIEN CR [Concomitant]
  6. RESTORIL [Concomitant]
  7. CELEXA [Concomitant]
  8. SEROQUEL [Suspect]
     Route: 048
  9. SEROQUEL [Suspect]
     Route: 048
  10. ALLEVE [Concomitant]
     Dosage: AS NEEDED
  11. XANAX [Concomitant]
  12. SEROQUEL [Suspect]
     Indication: BIPOLAR DISORDER
     Route: 048
     Dates: start: 20080101, end: 20110105
  13. SEROQUEL [Suspect]
     Indication: PANIC ATTACK
     Route: 048
     Dates: start: 20080101, end: 20110105
  14. SEROQUEL [Suspect]
     Route: 048
  15. SEROQUEL [Suspect]
     Route: 048
  16. SEROQUEL [Suspect]
     Route: 048
  17. SEROQUEL [Suspect]
     Route: 048
  18. SYNTHROID [Concomitant]
  19. WELLBUTRIN [Concomitant]
  20. AMBIEN [Concomitant]
     Indication: SLEEP DISORDER
  21. CELEXA [Concomitant]
  22. SEROQUEL [Suspect]
     Indication: MIGRAINE
     Route: 048
     Dates: start: 20080101, end: 20110105
  23. BUPROPION HCL [Concomitant]
  24. SEROQUEL [Suspect]
     Route: 048
  25. SEROQUEL [Suspect]
     Route: 048
  26. PHENERGAN [Concomitant]
     Indication: NAUSEA
     Dosage: AS NEEDED

REACTIONS (12)
  - MIGRAINE [None]
  - DEPRESSION [None]
  - COLITIS ULCERATIVE [None]
  - ADVERSE EVENT [None]
  - OSTEOPOROSIS [None]
  - INSOMNIA [None]
  - HEARING IMPAIRED [None]
  - TYMPANIC MEMBRANE PERFORATION [None]
  - CHRONIC LYMPHOCYTIC LEUKAEMIA [None]
  - SMALL INTESTINAL OBSTRUCTION [None]
  - SUICIDAL BEHAVIOUR [None]
  - DRUG DOSE OMISSION [None]
